FAERS Safety Report 7604062-X (Version None)
Quarter: 2011Q3

REPORT INFORMATION
  Report Type: 
  Country: None (occurrence: None)
  Receive Date: 20110711
  Receipt Date: 20110711
  Transmission Date: 20111222
  Serious: Yes (Other)
  Sender: FDA-Public Use
  Company Number: None

PATIENT
  Age: 36 Year
  Sex: Female
  Weight: 67.1324 kg

DRUGS (3)
  1. VENLAFAXINE [Suspect]
     Indication: PANIC ATTACK
     Dosage: 1 CAPSULE EVERY DAY 1 PO
     Route: 048
     Dates: start: 20110707, end: 20110707
  2. VENLAFAXINE [Suspect]
     Indication: ANXIETY
     Dosage: 1 CAPSULE EVERY DAY 1 PO
     Route: 048
     Dates: start: 20110707, end: 20110707
  3. VENLAFAXINE [Suspect]
     Indication: POSTPARTUM DEPRESSION
     Dosage: 1 CAPSULE EVERY DAY 1 PO
     Route: 048
     Dates: start: 20110707, end: 20110707

REACTIONS (8)
  - NAUSEA [None]
  - FEAR [None]
  - PARAESTHESIA [None]
  - CHEST DISCOMFORT [None]
  - SENSATION OF FOREIGN BODY [None]
  - DECREASED APPETITE [None]
  - DRY MOUTH [None]
  - DYSPEPSIA [None]
